FAERS Safety Report 23440542 (Version 9)
Quarter: 2025Q1

REPORT INFORMATION
  Report Type: Report from Study
  Country: US (occurrence: US)
  Receive Date: 20240125
  Receipt Date: 20250317
  Transmission Date: 20250408
  Serious: No
  Sender: DECIPHERA PHARMACEUTICALS
  Company Number: US-DECIPHERA PHARMACEUTICALS LLC-2024US000070

PATIENT
  Age: 62 Year
  Sex: Female

DRUGS (9)
  1. QINLOCK [Suspect]
     Active Substance: RIPRETINIB
     Indication: Gastrointestinal stromal tumour
     Dosage: 150 MILLIGRAM, QD
     Route: 048
     Dates: start: 20231010
  2. QINLOCK [Suspect]
     Active Substance: RIPRETINIB
     Dosage: 150 MILLIGRAM, QD
     Route: 048
  3. QINLOCK [Suspect]
     Active Substance: RIPRETINIB
     Dates: start: 202401
  4. QINLOCK [Suspect]
     Active Substance: RIPRETINIB
     Dosage: 150 MILLIGRAM, BID, ON MONDAYS, WEDNESDAYS AND FRIDAYS
     Route: 048
     Dates: start: 202312, end: 202405
  5. QINLOCK [Suspect]
     Active Substance: RIPRETINIB
     Dosage: 150 MILLIGRAM, QD, ON ALL OTHER DAYS (EXCEPT MONDAYS, WEDNESDAYS AND FRIDAYS)
     Route: 048
     Dates: end: 202405
  6. QINLOCK [Suspect]
     Active Substance: RIPRETINIB
     Dosage: 150 MILLIGRAM, BID, ON MONDAYS, WEDNESDAYS AND FRIDAYS
     Route: 048
     Dates: start: 202405
  7. QINLOCK [Suspect]
     Active Substance: RIPRETINIB
     Dosage: 150 MILLIGRAM, QD, ON ALL OTHER DAYS (EXCEPT MONDAYS, WEDNESDAYS AND FRIDAYS)
     Route: 048
     Dates: start: 202405
  8. QINLOCK [Suspect]
     Active Substance: RIPRETINIB
     Dosage: 150 MILLIGRAM, QD
     Route: 048
  9. QINLOCK [Suspect]
     Active Substance: RIPRETINIB
     Dosage: 150 MILLIGRAM, QD
     Route: 048

REACTIONS (10)
  - Vitamin D decreased [Unknown]
  - Colonoscopy [Unknown]
  - Pain in extremity [Recovered/Resolved]
  - Hyperkeratosis [Not Recovered/Not Resolved]
  - Urinary tract infection [Unknown]
  - Palmar-plantar erythrodysaesthesia syndrome [Recovering/Resolving]
  - Nausea [Unknown]
  - Diarrhoea [Recovering/Resolving]
  - Extra dose administered [Unknown]
  - Inappropriate schedule of product administration [Unknown]

NARRATIVE: CASE EVENT DATE: 20231201
